FAERS Safety Report 7519866-1 (Version None)
Quarter: 2011Q2

REPORT INFORMATION
  Report Type: 
  Country: None (occurrence: None)
  Receive Date: 20110602
  Receipt Date: 20110524
  Transmission Date: 20111010
  Serious: Yes (Other)
  Sender: FDA-Public Use
  Company Number: US-BAYER-2011-019683

PATIENT
  Sex: Female

DRUGS (3)
  1. BACLOFEN [Concomitant]
  2. BETASERON [Suspect]
     Dosage: 0.25 MG QOD
     Route: 058
     Dates: start: 20110101, end: 20110201
  3. BETASERON [Suspect]
     Indication: MULTIPLE SCLEROSIS
     Dosage: UNK
     Dates: end: 20090101

REACTIONS (6)
  - PYREXIA [None]
  - QUADRIPLEGIA [None]
  - MOBILITY DECREASED [None]
  - MUSCULAR WEAKNESS [None]
  - BLEPHAROSPASM [None]
  - HEADACHE [None]
